FAERS Safety Report 9143107 (Version 1)
Quarter: 2013Q1

REPORT INFORMATION
  Report Type: Spontaneous
  Country: US (occurrence: US)
  Receive Date: 20130306
  Receipt Date: 20130306
  Transmission Date: 20140127
  Serious: Yes (Hospitalization, Other)
  Sender: FDA-Public Use
  Company Number: US-PFIZER INC-2013074018

PATIENT
  Age: 59 Year
  Sex: Male

DRUGS (2)
  1. VFEND [Suspect]
     Dosage: UNK
  2. ZOLPIDEM TARTRATE [Suspect]
     Dosage: UNK

REACTIONS (7)
  - Incorrect dose administered [Unknown]
  - Confusional state [Recovered/Resolved]
  - Mental status changes [Recovered/Resolved]
  - Encephalopathy [Unknown]
  - Communication disorder [Unknown]
  - Hallucination, auditory [Unknown]
  - White matter lesion [Unknown]
